FAERS Safety Report 4526613-4 (Version None)
Quarter: 2004Q4

REPORT INFORMATION
  Report Type: 
  Country: None (occurrence: None)
  Receive Date: 20041213
  Receipt Date: 20041206
  Transmission Date: 20050328
  Serious: Yes (Other)
  Sender: FDA-Public Use
  Company Number: 163-20785-04120160

PATIENT
  Age: 60 Year
  Sex: Male

DRUGS (5)
  1. THALOMID [Suspect]
     Indication: MYELOFIBROSIS
     Dosage: 100 MG, DAILY, ORAL
     Route: 048
     Dates: start: 20041001, end: 20041101
  2. PREDNISONE [Concomitant]
  3. ALLOPURINOL [Concomitant]
  4. SYNTHROID [Concomitant]
  5. VITAMINS (VITAMINS) [Concomitant]

REACTIONS (1)
  - PULMONARY FIBROSIS [None]
